FAERS Safety Report 8884647 (Version 1)
Quarter: 2012Q4

REPORT INFORMATION
  Report Type: 
  Country: US (occurrence: US)
  Receive Date: 20121102
  Receipt Date: 20121102
  Transmission Date: 20130627
  Serious: Yes (Other)
  Sender: FDA-Public Use
  Company Number: US-PFIZER INC-2012272625

PATIENT
  Age: 71 Year
  Sex: Female

DRUGS (2)
  1. CELEBREX [Suspect]
     Indication: ARTHRITIS
     Dosage: 200 mg, Daily
     Dates: end: 2012
  2. LISINOPRIL [Suspect]
     Dosage: UNK

REACTIONS (2)
  - Nephropathy [Not Recovered/Not Resolved]
  - Cough [Unknown]
